FAERS Safety Report 18254088 (Version 1)
Quarter: 2020Q3

REPORT INFORMATION
  Report Type: Spontaneous
  Country: IT (occurrence: IT)
  Receive Date: 20200910
  Receipt Date: 20200910
  Transmission Date: 20201103
  Serious: Yes (Other)
  Sender: FDA-Public Use
  Company Number: IT-JNJFOC-20200849063

PATIENT
  Age: 38 Year
  Sex: Female

DRUGS (1)
  1. HALDOL [Suspect]
     Active Substance: HALOPERIDOL
     Indication: PRODUCT USED FOR UNKNOWN INDICATION
     Dosage: ORAL DROPS
     Route: 048
     Dates: start: 20200828

REACTIONS (2)
  - Sluggishness [Unknown]
  - Intentional self-injury [Unknown]
